FAERS Safety Report 19597701 (Version 1)
Quarter: 2021Q3

REPORT INFORMATION
  Report Type: Spontaneous
  Country: US (occurrence: US)
  Receive Date: 20210723
  Receipt Date: 20210723
  Transmission Date: 20211014
  Serious: No
  Sender: FDA-Public Use
  Company Number: US-JNJFOC-20210742908

PATIENT
  Age: 77 Year
  Sex: Female
  Weight: 101.7 kg

DRUGS (2)
  1. REMICADE [Suspect]
     Active Substance: INFLIXIMAB
     Indication: RHEUMATOID ARTHRITIS
     Route: 042
     Dates: start: 20090507, end: 20190415
  2. RENFLEXIS [Suspect]
     Active Substance: INFLIXIMAB-ABDA
     Indication: RHEUMATOID ARTHRITIS
     Route: 042
     Dates: start: 20190610, end: 20210318

REACTIONS (6)
  - Vulvovaginal burning sensation [Not Recovered/Not Resolved]
  - Urinary tract infection [Recovered/Resolved]
  - Ear pain [Recovered/Resolved]
  - Dacryostenosis acquired [Recovered/Resolved]
  - Pruritus [Recovered/Resolved]
  - Product substitution [Unknown]

NARRATIVE: CASE EVENT DATE: 20190610
